FAERS Safety Report 13960220 (Version 2)
Quarter: 2017Q3

REPORT INFORMATION
  Report Type: Spontaneous
  Country: DK (occurrence: DK)
  Receive Date: 20170912
  Receipt Date: 20170915
  Transmission Date: 20171128
  Serious: Yes (Life-Threatening, Hospitalization, Other)
  Sender: FDA-Public Use
  Company Number: DK-PFIZER INC-2017393530

PATIENT
  Age: 39 Year
  Sex: Female

DRUGS (1)
  1. GLYTRIN 0.4 MG/DOS [Suspect]
     Active Substance: NITROGLYCERIN
     Indication: CHEST PAIN
     Dosage: 1 DF, UNK (0.4 MG/DOS)
     Route: 060
     Dates: start: 20170215, end: 20170215

REACTIONS (3)
  - Cardiac arrest [Recovered/Resolved]
  - Malaise [Recovered/Resolved]
  - Anxiety [Not Recovered/Not Resolved]

NARRATIVE: CASE EVENT DATE: 201702
